FAERS Safety Report 8279296-4 (Version None)
Quarter: 2012Q2

REPORT INFORMATION
  Report Type: 
  Country: None (occurrence: None)
  Receive Date: 20120412
  Receipt Date: 20120404
  Transmission Date: 20120825
  Serious: Yes (Other)
  Sender: FDA-Public Use
  Company Number: PHHY2012US029040

PATIENT

DRUGS (4)
  1. ANTIBIOTIC [Concomitant]
  2. ANTI-VERTIGO MEDICATION [Concomitant]
  3. ASPIRIN [Suspect]
     Dosage: 1 DF, A DAY
     Route: 048
     Dates: start: 19870101
  4. MYOFLEX [Concomitant]

REACTIONS (8)
  - HEART RATE DECREASED [None]
  - INCORRECT DRUG ADMINISTRATION DURATION [None]
  - ARTHRITIS [None]
  - NEURITIS [None]
  - VERTIGO [None]
  - BLOOD PRESSURE DECREASED [None]
  - ROAD TRAFFIC ACCIDENT [None]
  - PAIN [None]
